FAERS Safety Report 16601569 (Version 4)
Quarter: 2019Q3

REPORT INFORMATION
  Report Type: Report from Study
  Country: US (occurrence: US)
  Receive Date: 20190720
  Receipt Date: 20190826
  Transmission Date: 20191004
  Serious: Yes (Death, Hospitalization)
  Sender: FDA-Public Use
  Company Number: PHHY2019US168241

PATIENT
  Sex: Female
  Weight: 40.5 kg

DRUGS (3)
  1. KYMRIAH [Suspect]
     Active Substance: TISAGENLECLEUCEL
     Indication: B-CELL LYMPHOMA STAGE IV
     Dosage: (1.3E8), ONCE/SINGLE
     Route: 042
     Dates: start: 20190708
  2. LORAZEPAM. [Concomitant]
     Active Substance: LORAZEPAM
     Indication: ANXIETY
     Dosage: 1 MG, Q4H
     Route: 065
     Dates: start: 20190714
  3. KYMRIAH [Suspect]
     Active Substance: TISAGENLECLEUCEL
     Indication: DIFFUSE LARGE B-CELL LYMPHOMA

REACTIONS (21)
  - Respiratory failure [Unknown]
  - Cytokine release syndrome [Unknown]
  - Abdominal distension [Not Recovered/Not Resolved]
  - Hypercalcaemia [Unknown]
  - Capillary leak syndrome [Unknown]
  - Pain [Not Recovered/Not Resolved]
  - Hypoglycaemia [Unknown]
  - Infection [Unknown]
  - Pancytopenia [Unknown]
  - Hepatic failure [Fatal]
  - Febrile neutropenia [Unknown]
  - Malaise [Unknown]
  - Abdominal discomfort [Unknown]
  - Tachypnoea [Unknown]
  - Diffuse large B-cell lymphoma [Unknown]
  - Malignant neoplasm progression [Unknown]
  - Out of specification test results [Unknown]
  - Hepatic encephalopathy [Unknown]
  - Blood phosphorus decreased [Unknown]
  - Encephalopathy [Unknown]
  - Fluid overload [Unknown]
